FAERS Safety Report 8220049-0 (Version None)
Quarter: 2012Q1

REPORT INFORMATION
  Report Type: 
  Country: None (occurrence: None)
  Receive Date: 20120320
  Receipt Date: 20120228
  Transmission Date: 20120608
  Serious: No
  Sender: FDA-Public Use
  Company Number: US-ROCHE-GNE221423

PATIENT
  Sex: Female
  Weight: 52.21 kg

DRUGS (5)
  1. XOLAIR [Suspect]
     Indication: ASTHMA
     Dosage: DOSE: 1 INJECTION
     Route: 058
     Dates: start: 20040101, end: 20090101
  2. CORTISONE ACETATE [Concomitant]
     Indication: POLYP
  3. PREDNISONE [Concomitant]
     Indication: POLYP
  4. XOLAIR [Suspect]
     Dates: start: 20090101
  5. SINGULAIR [Concomitant]
     Indication: HYPERSENSITIVITY

REACTIONS (4)
  - DEPRESSED MOOD [None]
  - CHEST DISCOMFORT [None]
  - PYREXIA [None]
  - MUSCLE TIGHTNESS [None]
